FAERS Safety Report 8335370-5 (Version None)
Quarter: 2012Q2

REPORT INFORMATION
  Report Type: 
  Country: None (occurrence: None)
  Receive Date: 20120503
  Receipt Date: 20120501
  Transmission Date: 20120825
  Serious: Yes (Hospitalization)
  Sender: FDA-Public Use
  Company Number: JP-GILEAD-E2B_00001475

PATIENT
  Age: 42 Year
  Sex: Male

DRUGS (2)
  1. HEPSERA [Suspect]
     Indication: HEPATITIS B
     Route: 048
  2. ANTIINFLAMMATORY AGENTS, NON-STEROIDS [Concomitant]
     Indication: PRODUCT USED FOR UNKNOWN INDICATION

REACTIONS (13)
  - ARTHRALGIA [None]
  - PAIN [None]
  - RENAL IMPAIRMENT [None]
  - HYPOPHOSPHATAEMIA [None]
  - BLOOD PHOSPHORUS DECREASED [None]
  - BONE METABOLISM DISORDER [None]
  - BONE DENSITY DECREASED [None]
  - BLOOD ALKALINE PHOSPHATASE INCREASED [None]
  - OSTEOMALACIA [None]
  - RENAL TUBULAR DISORDER [None]
  - SPINAL FRACTURE [None]
  - BACK PAIN [None]
  - FANCONI SYNDROME [None]
